FAERS Safety Report 7755398-3 (Version None)
Quarter: 2011Q3

REPORT INFORMATION
  Report Type: 
  Country: None (occurrence: None)
  Receive Date: 20110916
  Receipt Date: 20110908
  Transmission Date: 20111222
  Serious: No
  Sender: FDA-Public Use
  Company Number: JP-AMGEN-JPNCT2011017583

PATIENT
  Age: 73 Year
  Sex: Male
  Weight: 58 kg

DRUGS (14)
  1. LEUCOVORIN CALCIUM [Concomitant]
     Indication: COLORECTAL CANCER
     Route: 041
     Dates: start: 20101014, end: 20101030
  2. LEUCOVORIN CALCIUM [Concomitant]
     Route: 041
     Dates: start: 20101202
  3. PANITUMUMAB [Suspect]
     Indication: COLORECTAL CANCER
     Dosage: 4.8 MG/KG, Q2WK
     Route: 041
     Dates: start: 20101014, end: 20101028
  4. FLUOROURACIL [Concomitant]
     Indication: COLORECTAL CANCER
     Route: 040
     Dates: start: 20101014, end: 20101030
  5. FLUOROURACIL [Concomitant]
     Route: 041
     Dates: start: 20101202
  6. HIRUDOID [Concomitant]
     Dosage: UNK
     Route: 062
  7. OXALIPLATIN [Suspect]
     Indication: COLORECTAL CANCER
     Route: 041
     Dates: start: 20101014, end: 20101030
  8. FLUOROURACIL [Concomitant]
     Route: 041
     Dates: start: 20101014, end: 20101030
  9. FLUOROURACIL [Concomitant]
     Route: 040
     Dates: start: 20101202
  10. CORTICOSTEROIDS [Concomitant]
     Indication: PROPHYLAXIS
     Dosage: UNK
     Route: 065
  11. RAMELTEON [Concomitant]
     Dosage: UNK
     Route: 042
  12. ACETAMINOPHEN [Concomitant]
     Dosage: UNK
     Route: 048
  13. PANITUMUMAB [Suspect]
     Dosage: 4.8 MG/KG, Q2WK
     Route: 041
     Dates: start: 20101202
  14. PYDOXAL [Concomitant]
     Dosage: UNK
     Route: 048

REACTIONS (3)
  - PARONYCHIA [None]
  - GLOSSODYNIA [None]
  - DERMATITIS ACNEIFORM [None]
